FAERS Safety Report 5061949-2 (Version None)
Quarter: 2006Q3

REPORT INFORMATION
  Report Type: 
  Country: None (occurrence: None)
  Receive Date: 20060721
  Receipt Date: 20060713
  Transmission Date: 20061208
  Serious: Yes (Other)
  Sender: FDA-Public Use
  Company Number: 2006086470

PATIENT
  Age: 76 Year
  Sex: Male
  Weight: 68.0396 kg

DRUGS (2)
  1. KAOPECTATE STOOL SOFTENER (DOCUSATE CALCIUM) [Suspect]
     Indication: CONSTIPATION
     Dosage: 1 SOFTGEL ONCE DAILY, ORAL
     Route: 048
     Dates: start: 20050101
  2. DRUG, UNSPECIFIED (DRUG, UNSPECIFIED) [Concomitant]

REACTIONS (1)
  - DRUG DEPENDENCE [None]
